FAERS Safety Report 23837001 (Version 1)
Quarter: 2024Q2

REPORT INFORMATION
  Report Type: Spontaneous
  Country: EG (occurrence: EG)
  Receive Date: 20240509
  Receipt Date: 20240509
  Transmission Date: 20240716
  Serious: Yes (Hospitalization)
  Sender: FDA-Public Use
  Company Number: EG-002147023-NVSC2024EG097688

PATIENT
  Age: 38 Year
  Sex: Male

DRUGS (1)
  1. MAYZENT [Suspect]
     Active Substance: SIPONIMOD
     Indication: Multiple sclerosis
     Dosage: 2 MG, QD
     Route: 048
     Dates: start: 20240106

REACTIONS (2)
  - Diplopia [Recovering/Resolving]
  - Relapsing-remitting multiple sclerosis [Recovering/Resolving]

NARRATIVE: CASE EVENT DATE: 20240316
